FAERS Safety Report 17938007 (Version 1)
Quarter: 2020Q2

REPORT INFORMATION
  Report Type: Report from Study
  Country: CA (occurrence: CA)
  Receive Date: 20200624
  Receipt Date: 20200624
  Transmission Date: 20200714
  Serious: Yes (Hospitalization)
  Sender: FDA-Public Use
  Company Number: CA-JNJFOC-20200621824

PATIENT
  Age: 34 Year
  Sex: Male

DRUGS (3)
  1. STELARA [Suspect]
     Active Substance: USTEKINUMAB
     Indication: ERYTHRODERMIC PSORIASIS
     Route: 058
     Dates: start: 20111215
  2. PREDNISONE. [Concomitant]
     Active Substance: PREDNISONE
     Indication: PRODUCT USED FOR UNKNOWN INDICATION
     Route: 065
  3. STELARA [Suspect]
     Active Substance: USTEKINUMAB

REACTIONS (3)
  - Infection [Unknown]
  - Psoriasis [Unknown]
  - Drug hypersensitivity [Unknown]

NARRATIVE: CASE EVENT DATE: 20200601
